FAERS Safety Report 8017611-7 (Version None)
Quarter: 2012Q1

REPORT INFORMATION
  Report Type: 
  Country: None (occurrence: None)
  Receive Date: 20120103
  Receipt Date: 20111223
  Transmission Date: 20120608
  Serious: Yes (Hospitalization)
  Sender: FDA-Public Use
  Company Number: US-BAYER-2010-006301

PATIENT
  Age: 38 Year
  Sex: Female
  Weight: 130 kg

DRUGS (12)
  1. ALBUTEROL [Concomitant]
     Dosage: UNK UNK, BID
     Dates: start: 20080602, end: 20090513
  2. SEROQUEL [Concomitant]
     Dosage: 200 MG, BID
     Route: 048
     Dates: start: 20080602, end: 20090513
  3. ISOMENIA [Concomitant]
  4. DROSPIRENONE AND ETHINYL ESTRADIOL [Suspect]
     Indication: CONTRACEPTION
     Dosage: UNK UNK, QD
     Dates: start: 20080901, end: 20081201
  5. AMOXICILLIN [Concomitant]
     Dosage: 500 MG, UNK
     Route: 048
     Dates: start: 20071108, end: 20081110
  6. TRAZODONE HCL [Concomitant]
     Dosage: 100 MG, UNK
     Route: 048
     Dates: start: 20080602, end: 20100216
  7. IMITREX [Concomitant]
     Dosage: 25 MG, UNK
     Route: 048
     Dates: start: 20080806
  8. CLARITHROMYCIN [Concomitant]
     Dosage: 500 MG, UNK
     Route: 048
     Dates: start: 20081010
  9. ABILIFY [Concomitant]
     Dosage: 10 MG, UNK
     Route: 048
     Dates: start: 20080910, end: 20100216
  10. WELLBUTRIN [Concomitant]
     Dosage: UNK UNK, BID
     Route: 048
     Dates: start: 20080601, end: 20100216
  11. OMEPRAZOLE [Concomitant]
     Dosage: 20 MG, UNK
     Route: 048
     Dates: start: 20081110
  12. OXYCODONE HCL AND ACETAMINOPHEN [Concomitant]
     Dosage: UNK
     Route: 048
     Dates: start: 20071114, end: 20090604

REACTIONS (5)
  - INJURY [None]
  - PULMONARY EMBOLISM [None]
  - EMOTIONAL DISTRESS [None]
  - PAIN [None]
  - ANXIETY [None]
